FAERS Safety Report 19684982 (Version 2)
Quarter: 2021Q3

REPORT INFORMATION
  Report Type: Spontaneous
  Country: US (occurrence: US)
  Receive Date: 20210811
  Receipt Date: 20210819
  Transmission Date: 20211014
  Serious: No
  Sender: FDA-Public Use
  Company Number: US-JNJFOC-20210807251

PATIENT
  Age: 64 Year
  Sex: Female
  Weight: 80.33 kg

DRUGS (1)
  1. STELARA [Suspect]
     Active Substance: USTEKINUMAB
     Indication: COLITIS ULCERATIVE
     Dosage: ONCE EVERY 6?8 WEEKS
     Route: 058

REACTIONS (1)
  - Therapeutic product ineffective [Unknown]
